FAERS Safety Report 10181564 (Version 1)
Quarter: 2014Q2

REPORT INFORMATION
  Report Type: Spontaneous
  Country: DE (occurrence: DE)
  Receive Date: 20140519
  Receipt Date: 20140519
  Transmission Date: 20141212
  Serious: Yes (Congenital Anomaly, Other)
  Sender: FDA-Public Use
  Company Number: DE-PFIZER INC-2014132731

PATIENT
  Sex: Male
  Weight: 3.35 kg

DRUGS (3)
  1. VENLAFAXINE HCL [Suspect]
     Indication: DEPRESSION
     Dosage: 150 MG, DAILY
     Route: 064
  2. FOLIC ACID [Concomitant]
     Indication: PROPHYLAXIS OF NEURAL TUBE DEFECT
     Dosage: UNK
     Route: 064
  3. L-THYROXIN [Concomitant]
     Indication: HYPOTHYROIDISM
     Dosage: UNK
     Route: 064

REACTIONS (10)
  - Maternal exposure during pregnancy [Not Recovered/Not Resolved]
  - Neonatal respiratory distress syndrome [Unknown]
  - Agitation neonatal [Unknown]
  - Myoclonus [Unknown]
  - Developmental hip dysplasia [Unknown]
  - Atrial septal defect [Not Recovered/Not Resolved]
  - Congenital mitral valve incompetence [Recovered/Resolved]
  - Congenital tricuspid valve incompetence [Recovered/Resolved]
  - Patent ductus arteriosus [Recovered/Resolved]
  - Right ventricular hypertrophy [Not Recovered/Not Resolved]
